FAERS Safety Report 5266666-1 (Version None)
Quarter: 2007Q1

REPORT INFORMATION
  Report Type: 
  Country: None (occurrence: None)
  Receive Date: 20070312
  Receipt Date: 20070227
  Transmission Date: 20070707
  Serious: Yes (Death)
  Sender: FDA-Public Use
  Company Number: 2007JP000885

PATIENT
  Age: 34 Year
  Sex: Male

DRUGS (3)
  1. PROGRAF [Suspect]
     Indication: BONE MARROW TRANSPLANT
  2. METHOTREXATE FORMULATION UNKNOWN [Concomitant]
  3. GEMTUZUMAB OZOGAMICIN (GEMTUZUMAB OZOGAMICIN) FORMULATION UNKNOWN [Concomitant]

REACTIONS (3)
  - HAEMORRHOIDAL HAEMORRHAGE [None]
  - MOUTH HAEMORRHAGE [None]
  - VENOOCCLUSIVE LIVER DISEASE [None]
